FAERS Safety Report 9687619 (Version 1)
Quarter: 2013Q4

REPORT INFORMATION
  Report Type: Spontaneous
  Country: US (occurrence: None)
  Receive Date: 20131112
  Receipt Date: 20131112
  Transmission Date: 20140711
  Serious: Yes (Death, Hospitalization)
  Sender: FDA-Public Use
  Company Number: 2013AP009614

PATIENT
  Age: 29 Year
  Sex: Female

DRUGS (3)
  1. QUETIAPINE FUMARATE [Suspect]
  2. BUPROPION HYDROCHLORIDE [Suspect]
  3. IBUPROFEN [Suspect]

REACTIONS (12)
  - Cardiac arrest [None]
  - Circulatory collapse [None]
  - Brain injury [None]
  - Overdose [None]
  - Pulseless electrical activity [None]
  - Sinus tachycardia [None]
  - Hypotension [None]
  - Body temperature decreased [None]
  - Coma scale abnormal [None]
  - Blood pH decreased [None]
  - Blood bicarbonate decreased [None]
  - Blood lactic acid increased [None]
